FAERS Safety Report 23188177 (Version 1)
Quarter: 2023Q4

REPORT INFORMATION
  Report Type: Spontaneous
  Country: US (occurrence: US)
  Receive Date: 20231115
  Receipt Date: 20231115
  Transmission Date: 20240109
  Serious: No
  Sender: FDA-Public Use
  Company Number: US-OptiNose US, Inc-2023OPT000116

PATIENT
  Age: 28 Year
  Sex: Female
  Weight: 68.94 kg

DRUGS (4)
  1. XHANCE [Suspect]
     Active Substance: FLUTICASONE PROPIONATE
     Indication: Nasal polyps
     Route: 045
     Dates: start: 202303, end: 202306
  2. DUPIXENT [Concomitant]
     Active Substance: DUPILUMAB
     Indication: Nasal polyps
     Route: 058
  3. OPZELURA [Concomitant]
     Active Substance: RUXOLITINIB PHOSPHATE
     Indication: Product used for unknown indication
     Route: 065
  4. CICLOPIROX [Concomitant]
     Active Substance: CICLOPIROX\TOCOPHEROL
     Indication: Product used for unknown indication
     Route: 065

REACTIONS (3)
  - Papule [Unknown]
  - Pruritus [Unknown]
  - Epistaxis [Recovering/Resolving]

NARRATIVE: CASE EVENT DATE: 20230101
